FAERS Safety Report 23975650 (Version 4)
Quarter: 2024Q3

REPORT INFORMATION
  Report Type: Report from Study
  Country: US (occurrence: US)
  Receive Date: 20240614
  Receipt Date: 20240816
  Transmission Date: 20241017
  Serious: Yes (Hospitalization, Other)
  Sender: UNITED THERAPEUTICS
  Company Number: US-UNITED THERAPEUTICS-UNT-2024-014043

PATIENT
  Sex: Male

DRUGS (7)
  1. TREPROSTINIL SODIUM [Suspect]
     Active Substance: TREPROSTINIL SODIUM
     Indication: Pulmonary arterial hypertension
     Dosage: 30 ?G, QID
     Dates: start: 2024, end: 2024
  2. TREPROSTINIL SODIUM [Suspect]
     Active Substance: TREPROSTINIL SODIUM
     Dosage: 48 ?G, QID
     Dates: start: 2024, end: 2024
  3. TREPROSTINIL SODIUM [Suspect]
     Active Substance: TREPROSTINIL SODIUM
     Dosage: 54 ?G, QID
     Dates: start: 2024, end: 2024
  4. TREPROSTINIL SODIUM [Suspect]
     Active Substance: TREPROSTINIL SODIUM
     Dosage: 60 ?G, QID
     Dates: start: 2024
  5. TREPROSTINIL SODIUM [Suspect]
     Active Substance: TREPROSTINIL SODIUM
     Dosage: UNK
  6. OXYGEN [Concomitant]
     Active Substance: OXYGEN
     Indication: Dyspnoea exertional
     Dosage: 2.5-5 LITERS
  7. OXYGEN [Concomitant]
     Active Substance: OXYGEN
     Indication: Dyspnoea

REACTIONS (10)
  - Pneumonia [Recovering/Resolving]
  - Cough [Not Recovered/Not Resolved]
  - Dyspnoea [Recovering/Resolving]
  - Gait disturbance [Unknown]
  - Dyspnoea exertional [Unknown]
  - Headache [Unknown]
  - Fatigue [Not Recovered/Not Resolved]
  - Dehydration [Unknown]
  - Dizziness [Unknown]
  - Therapy non-responder [Unknown]

NARRATIVE: CASE EVENT DATE: 20240101
